FAERS Safety Report 4848286-3 (Version None)
Quarter: 2005Q4

REPORT INFORMATION
  Report Type: 
  Country: None (occurrence: None)
  Receive Date: 20051115
  Receipt Date: 20050722
  Transmission Date: 20060501
  Serious: No
  Sender: FDA-Public Use
  Company Number: S05-USA-03757-01

PATIENT
  Age: 73 Year
  Sex: Female

DRUGS (10)
  1. NAMENDA [Suspect]
     Indication: DEMENTIA ALZHEIMER'S TYPE
     Dosage: 10 MG BID PO
     Route: 048
     Dates: start: 20040701
  2. LORTAB [Concomitant]
  3. FENTANYL [Concomitant]
  4. BACLOFEN [Concomitant]
  5. ZOLOFT [Concomitant]
  6. LEVOXYL [Concomitant]
  7. ARICEPT [Concomitant]
  8. SENOKOT [Concomitant]
  9. LACTULOSE [Concomitant]
  10. LUMIGAN [Concomitant]

REACTIONS (1)
  - BRUXISM [None]
